FAERS Safety Report 6921997-1 (Version None)
Quarter: 2010Q3

REPORT INFORMATION
  Report Type: 
  Country: None (occurrence: None)
  Receive Date: 20100812
  Receipt Date: 20100803
  Transmission Date: 20110219
  Serious: Yes (Hospitalization)
  Sender: FDA-Public Use
  Company Number: PHHY2010IL50178

PATIENT
  Age: 77 Year
  Sex: Male

DRUGS (2)
  1. EXELON [Suspect]
     Indication: DEMENTIA ALZHEIMER'S TYPE
     Dosage: 6 MG DAILY
     Route: 048
     Dates: start: 20100723, end: 20100724
  2. EXELON [Suspect]
     Dosage: 6 MG DAILY
     Route: 048

REACTIONS (6)
  - ASTHENIA [None]
  - BALANCE DISORDER [None]
  - CHEST PAIN [None]
  - CONFUSIONAL STATE [None]
  - SOMNOLENCE [None]
  - VISION BLURRED [None]
